FAERS Safety Report 23351286 (Version 1)
Quarter: 2023Q4

REPORT INFORMATION
  Report Type: Spontaneous
  Country: US (occurrence: US)
  Receive Date: 20231229
  Receipt Date: 20231229
  Transmission Date: 20240110
  Serious: Yes (Hospitalization, Other)
  Sender: FDA-Public Use
  Company Number: US-BRISTOL-MYERS SQUIBB COMPANY-2023-185349

PATIENT
  Age: 76 Year
  Sex: Female

DRUGS (1)
  1. IDHIFA [Suspect]
     Active Substance: ENASIDENIB MESYLATE
     Indication: Product used for unknown indication
     Dosage: DOSE : 100MG;     FREQ : TAKE 1 TABLET BY MOUTH ONCE DAILY ON DAYS 1-28 AS DIRECTED
     Route: 048

REACTIONS (2)
  - Immunodeficiency [Unknown]
  - Bronchitis [Unknown]
